FAERS Safety Report 4957295-5 (Version None)
Quarter: 2006Q1

REPORT INFORMATION
  Report Type: 
  Country: None (occurrence: None)
  Receive Date: 20060323
  Receipt Date: 20060313
  Transmission Date: 20060701
  Serious: Yes (Hospitalization, Other)
  Sender: FDA-Public Use
  Company Number: GXBR2006US00698

PATIENT
  Age: 84 Year
  Sex: Female
  Weight: 52.2 kg

DRUGS (6)
  1. AMIODARONE HCL [Suspect]
     Indication: VENTRICULAR ARRHYTHMIA
     Dosage: 200 MG QD ORAL
     Route: 048
     Dates: start: 20060222
  2. DIGOXIN [Concomitant]
  3. LIPITOR [Concomitant]
  4. SYNTHROID [Concomitant]
  5. ASPIRIN [Concomitant]
  6. COREG [Concomitant]

REACTIONS (11)
  - CHEST X-RAY ABNORMAL [None]
  - DEHYDRATION [None]
  - DIET REFUSAL [None]
  - DIZZINESS [None]
  - DYSGEUSIA [None]
  - EYE INJURY [None]
  - EYEBALL RUPTURE [None]
  - FALL [None]
  - PRODUCTIVE COUGH [None]
  - RETINAL DETACHMENT [None]
  - TREMOR [None]
